FAERS Safety Report 23747389 (Version 4)
Quarter: 2025Q1

REPORT INFORMATION
  Report Type: Report from Study
  Country: CA (occurrence: CA)
  Receive Date: 20240416
  Receipt Date: 20250203
  Transmission Date: 20250408
  Serious: Yes (Hospitalization)
  Sender: NOVARTIS
  Company Number: CA-SANDOZ-SDZ2024CA036192

PATIENT
  Age: 33 Year
  Sex: Male

DRUGS (3)
  1. DEFERASIROX [Suspect]
     Active Substance: DEFERASIROX
     Indication: Iron overload
     Dosage: 180 MG, QD (DISPERSIBLE TABLET)
     Route: 048
     Dates: start: 20220513
  2. DEFERASIROX [Suspect]
     Active Substance: DEFERASIROX
     Dosage: 540 MG, QD 2 DOSE (DISPERSIBLE TABLET)
     Route: 048
     Dates: start: 20240314
  3. DEFERASIROX [Suspect]
     Active Substance: DEFERASIROX
     Dosage: 3X180 MG ONCE A DAY (DISPERSIBLE TABLET)
     Route: 065

REACTIONS (1)
  - Palpitations [Recovered/Resolved]

NARRATIVE: CASE EVENT DATE: 20240405
